FAERS Safety Report 6123433-4 (Version None)
Quarter: 2009Q1

REPORT INFORMATION
  Report Type: 
  Country: None (occurrence: None)
  Receive Date: 20090318
  Receipt Date: 20090306
  Transmission Date: 20090719
  Serious: Yes (Hospitalization)
  Sender: FDA-Public Use
  Company Number: FR-B.I. PHARMACEUTICALS,INC./RIDGEFIELD-2009-FF-00181FF

PATIENT
  Age: 73 Year
  Sex: Female

DRUGS (4)
  1. SIFROL [Suspect]
     Indication: PARKINSON'S DISEASE
     Dosage: 3.15MG
     Route: 048
     Dates: end: 20090211
  2. MODOPAR [Suspect]
     Indication: PARKINSON'S DISEASE
     Dosage: 187.5MG
     Route: 048
     Dates: start: 20090113, end: 20090208
  3. OTRASEL [Concomitant]
     Indication: PARKINSON'S DISEASE
     Dosage: 1.25MG
     Route: 048
     Dates: end: 20090202
  4. DOMPERIDONE [Concomitant]
     Indication: NAUSEA
     Route: 048
     Dates: start: 20090101, end: 20090211

REACTIONS (3)
  - CONFUSIONAL STATE [None]
  - ENCEPHALOPATHY [None]
  - MYOCLONUS [None]
